FAERS Safety Report 16782559 (Version 1)
Quarter: 2019Q3

REPORT INFORMATION
  Report Type: Spontaneous
  Country: US (occurrence: US)
  Receive Date: 20190717
  Receipt Date: 20190717
  Transmission Date: 20191005
  Serious: Yes (Hospitalization)
  Sender: FDA-Public Use
  Company Number: None

PATIENT
  Age: 52 Year
  Sex: Male

DRUGS (11)
  1. IPRATROPIUM/SOL ALBUTER [Concomitant]
  2. SYMBICORT AER [Concomitant]
  3. CREON CAP [Concomitant]
  4. LEVALBUTEROL NEB [Concomitant]
  5. PREDNISONE TAB [Concomitant]
     Active Substance: PREDNISONE
  6. SODIUM CHLOR NEB [Concomitant]
  7. PREDNISONE  5MG TAB [Suspect]
     Active Substance: PREDNISONE
     Indication: CYSTIC FIBROSIS
     Dosage: ?          OTHER DOSE:2 TABS;?
     Route: 048
     Dates: start: 20180504
  8. BUDESONEIDE SUS [Concomitant]
  9. SERTRALINE TAB [Concomitant]
     Active Substance: SERTRALINE HYDROCHLORIDE
  10. PULMOZYME [Suspect]
     Active Substance: DORNASE ALFA
     Indication: CYSTIC FIBROSIS
     Dosage: ?          OTHER DOSE:1 AMPULE;?
     Route: 055
     Dates: start: 20190518
  11. CERTIRIZINE TAB [Concomitant]

REACTIONS (3)
  - Cystic fibrosis [None]
  - Condition aggravated [None]
  - Dyspnoea [None]

NARRATIVE: CASE EVENT DATE: 201906
